FAERS Safety Report 16001338 (Version 1)
Quarter: 2019Q1

REPORT INFORMATION
  Report Type: Spontaneous
  Country: JP (occurrence: JP)
  Receive Date: 20190225
  Receipt Date: 20190225
  Transmission Date: 20190418
  Serious: Yes (Other)
  Sender: FDA-Public Use
  Company Number: JP-009507513-1902JPN001473J

PATIENT
  Age: 85 Year
  Sex: Male

DRUGS (5)
  1. LEVOTHYROXINE SODIUM HYDRATE [Concomitant]
     Active Substance: LEVOTHYROXINE SODIUM
     Dosage: 75 MICROGRAM, QD
     Route: 048
  2. NU-LOTAN [Suspect]
     Active Substance: LOSARTAN POTASSIUM
     Dosage: 25 MILLIGRAM, QD
     Route: 048
  3. PILSICAINIDE HYDROCHLORIDE HYDRATE [Concomitant]
     Active Substance: PILSICAINIDE HYDROCHLORIDE HEMIHYDRATE
     Dosage: 25 MILLIGRAM, QD
     Route: 048
  4. HYDROCORTISONE. [Concomitant]
     Active Substance: HYDROCORTISONE
     Dosage: 20 MILLIGRAM, QD
     Route: 048
  5. WARFARIN K [Concomitant]
     Active Substance: WARFARIN POTASSIUM
     Dosage: 0.087 MILLIGRAM, QD
     Route: 048

REACTIONS (3)
  - Artery dissection [Unknown]
  - Splenic infarction [Unknown]
  - Mesenteric artery thrombosis [Unknown]
